FAERS Safety Report 6824425-X (Version None)
Quarter: 2010Q3

REPORT INFORMATION
  Report Type: 
  Country: None (occurrence: None)
  Receive Date: 20100708
  Receipt Date: 20061021
  Transmission Date: 20110219
  Serious: No
  Sender: FDA-Public Use
  Company Number: US-PFIZER INC-2006129729

PATIENT
  Sex: Male
  Weight: 74.84 kg

DRUGS (7)
  1. CHANTIX [Suspect]
     Route: 048
     Dates: start: 20061014
  2. MORPHINE [Concomitant]
  3. DILAUDID [Concomitant]
  4. LIPITOR [Concomitant]
  5. METOPROLOL [Concomitant]
  6. ZETIA [Concomitant]
  7. ASPIRIN [Concomitant]

REACTIONS (1)
  - LIBIDO INCREASED [None]
